FAERS Safety Report 19586545 (Version 2)
Quarter: 2021Q4

REPORT INFORMATION
  Report Type: Spontaneous
  Country: US (occurrence: US)
  Receive Date: 20210721
  Receipt Date: 20211129
  Transmission Date: 20220304
  Serious: Yes (Hospitalization)
  Sender: FDA-Public Use
  Company Number: US-BIOGEN-2021BI01031456

PATIENT
  Sex: Female

DRUGS (1)
  1. VUMERITY [Suspect]
     Active Substance: DIROXIMEL FUMARATE
     Indication: Multiple sclerosis
     Dosage: SHE HAD BEEN TAKING 2 PILLS A DAY OF VUMERITY (ONE IN THE MORNING AND ONE AT NIGHT) FROM MARCH UN...
     Route: 048
     Dates: start: 20210308

REACTIONS (2)
  - Urinary tract infection [Unknown]
  - Exposure to toxic agent [Unknown]
